FAERS Safety Report 16702992 (Version 1)
Quarter: 2019Q3

REPORT INFORMATION
  Report Type: Spontaneous
  Country: US (occurrence: US)
  Receive Date: 20190814
  Receipt Date: 20190814
  Transmission Date: 20191004
  Serious: No
  Sender: FDA-Public Use
  Company Number: US-TEVA-2019-US-1090928

PATIENT
  Sex: Female

DRUGS (1)
  1. ACTAVIS ROSUVASTATIN [Suspect]
     Active Substance: ROSUVASTATIN CALCIUM
     Route: 065

REACTIONS (2)
  - Expired product administered [Unknown]
  - Adverse event [Unknown]
